FAERS Safety Report 9350695 (Version 1)
Quarter: 2013Q2

REPORT INFORMATION
  Report Type: Report from Study
  Country: BR (occurrence: BR)
  Receive Date: 20130617
  Receipt Date: 20130617
  Transmission Date: 20140414
  Serious: Yes (Other)
  Sender: FDA-Public Use
  Company Number: PHHY2013BR060455

PATIENT
  Age: 83 Year
  Sex: Female

DRUGS (6)
  1. APRESOLIN [Suspect]
     Indication: HYPERTENSION
     Dosage: 3 DF(ONE TABLET OF 25MG AND TWO TABLETS OF 50MG),DAILY
     Route: 048
  2. DIOVAN HCT [Suspect]
     Indication: CARDIAC DISORDER
     Dosage: 2 DF(160/25MG), DAILY
     Route: 048
  3. ATENSINA [Concomitant]
     Indication: BLOOD PRESSURE ABNORMAL
     Dosage: 3 DF(100MG), DAILY
     Route: 048
  4. LASIX [Concomitant]
     Indication: FLUID RETENTION
     Dosage: 1 DF(20MG), DAILY
     Route: 048
  5. PURAN T4 [Concomitant]
     Indication: THYROID DISORDER
     Dosage: 1 DF(75UG), DAILY
     Route: 048
  6. COMBIRON [Concomitant]
     Indication: IRON DEFICIENCY ANAEMIA
     Dosage: 1 DF(120MG), DAILY
     Route: 048
     Dates: start: 2007

REACTIONS (3)
  - Cardiac disorder [Recovered/Resolved]
  - Cerebrovascular accident [Recovered/Resolved]
  - Restless legs syndrome [Not Recovered/Not Resolved]
